FAERS Safety Report 9648967 (Version 2)
Quarter: 2014Q1

REPORT INFORMATION
  Report Type: Spontaneous
  Country: IT (occurrence: IT)
  Receive Date: 20131028
  Receipt Date: 20140213
  Transmission Date: 20141002
  Serious: Yes (Hospitalization)
  Sender: FDA-Public Use
  Company Number: IT-SA-2013SA106212

PATIENT
  Age: 58 Year
  Sex: Female

DRUGS (3)
  1. OXALIPLATIN [Suspect]
     Indication: COLORECTAL ADENOCARCINOMA
     Route: 042
     Dates: start: 20130925, end: 20130925
  2. LEDERFOLIN [Concomitant]
     Dosage: 175 MG POWDER FOR SOLUTION FOR INFUSION
     Route: 042
     Dates: start: 20130925, end: 20130925
  3. 5-FU [Concomitant]
     Route: 042

REACTIONS (5)
  - Feeling hot [Recovered/Resolved]
  - Chest discomfort [Recovered/Resolved]
  - Erythema [Recovered/Resolved]
  - Rash erythematous [Recovered/Resolved]
  - Dyspnoea [Recovered/Resolved]
